FAERS Safety Report 7521230-6 (Version None)
Quarter: 2011Q2

REPORT INFORMATION
  Report Type: 
  Country: None (occurrence: None)
  Receive Date: 20110603
  Receipt Date: 20101210
  Transmission Date: 20111010
  Serious: Yes (Other)
  Sender: FDA-Public Use
  Company Number: US-BAYER-2010-005238

PATIENT
  Age: 36 Year
  Sex: Female

DRUGS (1)
  1. MAGNEVIST [Suspect]
     Indication: NUCLEAR MAGNETIC RESONANCE IMAGING BRAIN
     Dosage: 17 ML, ONCE
     Route: 042
     Dates: start: 20101210

REACTIONS (4)
  - PRURITUS GENERALISED [None]
  - VOMITING [None]
  - LOSS OF CONSCIOUSNESS [None]
  - CONVULSION [None]
